FAERS Safety Report 15824847 (Version 1)
Quarter: 2019Q1

REPORT INFORMATION
  Report Type: Spontaneous
  Country: DE (occurrence: DE)
  Receive Date: 20190115
  Receipt Date: 20190115
  Transmission Date: 20190417
  Serious: Yes (Congenital Anomaly, Other)
  Sender: FDA-Public Use
  Company Number: DE-SUN PHARMACEUTICAL INDUSTRIES LTD-2019RR-196106

PATIENT
  Age: 1 Day
  Sex: Female
  Weight: 3.05 kg

DRUGS (3)
  1. SERTRALINE [Suspect]
     Active Substance: SERTRALINE HYDROCHLORIDE
     Indication: DEPRESSION
     Dosage: 100 [MG/D]
     Route: 064
     Dates: start: 20170720, end: 20180416
  2. MIRTAZAPINE. [Suspect]
     Active Substance: MIRTAZAPINE
     Indication: DEPRESSION
     Dosage: 30 [MG/D]
     Route: 064
     Dates: start: 20170720, end: 20180416
  3. TAVOR 0,5 TABLETTEN [Concomitant]
     Indication: ANXIETY
     Dosage: 0.5 [MG/D (BEI BEDARF) ]/ IF REQUIRED ()
     Route: 064
     Dates: start: 20170720, end: 20180416

REACTIONS (5)
  - Agitation neonatal [Recovered/Resolved]
  - Neonatal respiratory distress syndrome [Recovered/Resolved]
  - Foetal exposure during pregnancy [Unknown]
  - Hypertonia neonatal [Recovered/Resolved]
  - Atrial septal defect [Unknown]

NARRATIVE: CASE EVENT DATE: 20180416
